FAERS Safety Report 4763153-1 (Version None)
Quarter: 2005Q3

REPORT INFORMATION
  Report Type: 
  Country: None (occurrence: None)
  Receive Date: 20050823
  Receipt Date: 20050812
  Transmission Date: 20060218
  Serious: Yes (Life-Threatening)
  Sender: FDA-Public Use
  Company Number: THYM-10448

PATIENT
  Age: 24 Year
  Sex: Female
  Weight: 79.379 kg

DRUGS (11)
  1. THYMOGLOBULIN [Suspect]
     Indication: RENAL TRANSPLANT
     Dosage: 100 MG QD, IV
     Route: 042
     Dates: start: 20041130, end: 20041204
  2. THYMOGLOBULIN [Suspect]
     Indication: RENAL TRANSPLANT
     Dosage: 100 MG QD, IV
     Route: 042
     Dates: start: 20041203, end: 20041204
  3. SOLU-MEDROL [Concomitant]
  4. DILAUDID [Concomitant]
  5. ANZEMET [Concomitant]
  6. ALBUMIN (HUMAN) [Concomitant]
  7. ANESTHESIA [Concomitant]
  8. CALCIUM GLUCONATE [Concomitant]
  9. MAGNESIUM SULFATE [Concomitant]
  10. PROGRAF [Concomitant]
  11. CALCIUM GLUCONATE [Concomitant]

REACTIONS (5)
  - ACUTE PULMONARY OEDEMA [None]
  - ACUTE RESPIRATORY FAILURE [None]
  - CYTOKINE RELEASE SYNDROME [None]
  - HYPOTENSION [None]
  - TACHYCARDIA [None]
